FAERS Safety Report 5097337-2 (Version None)
Quarter: 2006Q3

REPORT INFORMATION
  Report Type: 
  Country: None (occurrence: None)
  Receive Date: 20060906
  Receipt Date: 20060314
  Transmission Date: 20061208
  Serious: Yes (Other)
  Sender: FDA-Public Use
  Company Number: DE-GLAXOSMITHKLINE-D0049012A

PATIENT
  Age: 20 Year
  Sex: Female
  Weight: 70 kg

DRUGS (1)
  1. LAMICTAL [Suspect]
     Indication: EPILEPSY
     Dosage: 100MG TWICE PER DAY
     Route: 048
     Dates: start: 20010101

REACTIONS (9)
  - ARTHRALGIA [None]
  - BACK PAIN [None]
  - DERMATITIS ALLERGIC [None]
  - ECZEMA [None]
  - INFLUENZA [None]
  - LYMPHADENOPATHY [None]
  - MYALGIA [None]
  - NECK PAIN [None]
  - NEURALGIA [None]
